FAERS Safety Report 9990376 (Version 1)
Quarter: 2014Q1

REPORT INFORMATION
  Report Type: Report from Study
  Country: US (occurrence: US)
  Receive Date: 20140310
  Receipt Date: 20140310
  Transmission Date: 20141002
  Serious: Yes (Other)
  Sender: FDA-Public Use
  Company Number: US-ABBVIE-13P-163-1135304-00

PATIENT
  Sex: Female

DRUGS (4)
  1. HUMIRA [Suspect]
     Indication: CROHN^S DISEASE
     Dosage: 4- 40 MG IN ONE DAY
     Dates: start: 20130409, end: 20130409
  2. HUMIRA [Suspect]
     Dosage: 2 - 40 MG IN ONE DAY
     Dates: start: 20130423, end: 20130423
  3. HUMIRA [Suspect]
     Dates: start: 201305, end: 20130627
  4. METHOTREXATE [Concomitant]
     Indication: CROHN^S DISEASE

REACTIONS (1)
  - Ileectomy [Unknown]
